FAERS Safety Report 4692349-2 (Version None)
Quarter: 2005Q2

REPORT INFORMATION
  Report Type: 
  Country: None (occurrence: None)
  Receive Date: 20050616
  Receipt Date: 20050125
  Transmission Date: 20051028
  Serious: Yes (Hospitalization)
  Sender: FDA-Public Use
  Company Number: FRWYE367525JAN05

PATIENT
  Age: 41 Year
  Sex: Male

DRUGS (1)
  1. ENBREL [Suspect]
     Indication: ANKYLOSING SPONDYLITIS
     Route: 058
     Dates: start: 20031215, end: 20041015

REACTIONS (5)
  - ASTHENIA [None]
  - CHOLESTASIS [None]
  - FEBRILE NEUTROPENIA [None]
  - THROMBOCYTOPENIA [None]
  - VIRAL INFECTION [None]
